FAERS Safety Report 9544138 (Version 1)
Quarter: 2013Q3

REPORT INFORMATION
  Report Type: Spontaneous
  Country: RU (occurrence: RU)
  Receive Date: 20130923
  Receipt Date: 20130923
  Transmission Date: 20140515
  Serious: Yes (Other)
  Sender: FDA-Public Use
  Company Number: RU-009507513-1302RUS007078

PATIENT
  Age: 4 Year
  Sex: Female

DRUGS (1)
  1. NASONEX [Suspect]
     Indication: ADENOIDITIS
     Dosage: UNK

REACTIONS (2)
  - Drug ineffective [Unknown]
  - Surgery [Unknown]
